FAERS Safety Report 20029626 (Version 1)
Quarter: 2021Q4

REPORT INFORMATION
  Report Type: Spontaneous
  Country: US (occurrence: US)
  Receive Date: 20211103
  Receipt Date: 20211103
  Transmission Date: 20220303
  Serious: No
  Sender: FDA-Public Use
  Company Number: US-UPSHER-SMITH LABORATORIES, LLC-2021USL00678

PATIENT
  Age: 54 Year
  Sex: Female

DRUGS (8)
  1. JANTOVEN [Suspect]
     Active Substance: WARFARIN SODIUM
     Indication: Pulmonary thrombosis
     Dosage: UNK
     Dates: start: 202107, end: 2021
  2. JANTOVEN [Suspect]
     Active Substance: WARFARIN SODIUM
     Dosage: UNK, DOSE INCREASE
     Dates: start: 2021
  3. RUBRACA [Suspect]
     Active Substance: RUCAPARIB CAMSYLATE
     Dosage: 600 MG, 2X/DAY
     Route: 048
     Dates: start: 20210727
  4. RUBRACA [Suspect]
     Active Substance: RUCAPARIB CAMSYLATE
     Dosage: 600 MG, 2X/DAY
     Route: 048
     Dates: start: 20210727
  5. PAROXETINE [Concomitant]
     Active Substance: PAROXETINE
  6. GABAPENTIN [Concomitant]
     Active Substance: GABAPENTIN
  7. ENOXAPARIN [Concomitant]
     Active Substance: ENOXAPARIN
  8. PHENYTOIN SODIUM [Concomitant]
     Active Substance: PHENYTOIN SODIUM

REACTIONS (1)
  - International normalised ratio decreased [Not Recovered/Not Resolved]

NARRATIVE: CASE EVENT DATE: 20210819
